FAERS Safety Report 14141492 (Version 1)
Quarter: 2017Q4

REPORT INFORMATION
  Report Type: Spontaneous
  Country: DK (occurrence: DK)
  Receive Date: 20171030
  Receipt Date: 20171030
  Transmission Date: 20180321
  Serious: Yes (Other)
  Sender: FDA-Public Use
  Company Number: PHHY2017DK150643

PATIENT
  Sex: Female

DRUGS (4)
  1. RAMIPRIL. [Suspect]
     Active Substance: RAMIPRIL
     Indication: BLOOD PRESSURE INCREASED
     Dosage: UNK
     Route: 065
     Dates: start: 2017
  2. HJERTEMAGNYL [Suspect]
     Active Substance: ASPIRIN\MAGNESIUM OXIDE
     Indication: ANTICOAGULANT THERAPY
  3. HJERTEMAGNYL [Suspect]
     Active Substance: ASPIRIN\MAGNESIUM OXIDE
     Indication: BLOOD PRESSURE MEASUREMENT
     Dosage: UNK
     Route: 065
     Dates: start: 2017
  4. ATENOLOL SANDOZ [Suspect]
     Active Substance: ATENOLOL
     Indication: BLOOD PRESSURE INCREASED
     Dosage: 0.5 DF, BID
     Route: 065
     Dates: start: 2017

REACTIONS (5)
  - Hypotension [Recovering/Resolving]
  - Gait disturbance [Not Recovered/Not Resolved]
  - Confusional state [Recovering/Resolving]
  - Myalgia [Recovering/Resolving]
  - Visual impairment [Unknown]

NARRATIVE: CASE EVENT DATE: 201710
